FAERS Safety Report 5079395-4 (Version None)
Quarter: 2006Q3

REPORT INFORMATION
  Report Type: 
  Country: None (occurrence: None)
  Receive Date: 20060809
  Receipt Date: 20060807
  Transmission Date: 20061208
  Serious: Yes (Hospitalization, Other)
  Sender: FDA-Public Use
  Company Number: USA-2006-0024701

PATIENT
  Age: 64 Year
  Sex: Female

DRUGS (4)
  1. OXYCONTIN [Suspect]
     Indication: SPINAL COMPRESSION FRACTURE
     Dosage: 40 MG, Q12H
     Dates: end: 20060701
  2. DIOVAN [Concomitant]
  3. LASIX [Concomitant]
  4. ACCOLATE [Concomitant]

REACTIONS (5)
  - DRUG WITHDRAWAL SYNDROME [None]
  - EYE SWELLING [None]
  - MYOCARDIAL INFARCTION [None]
  - RASH [None]
  - SWELLING FACE [None]
